FAERS Safety Report 4481379-1 (Version None)
Quarter: 2004Q4

REPORT INFORMATION
  Report Type: 
  Country: None (occurrence: None)
  Receive Date: 20040923
  Receipt Date: 20040628
  Transmission Date: 20050328
  Serious: No
  Sender: FDA-Public Use
  Company Number: USA031152581

PATIENT
  Age: 77 Year
  Sex: Female

DRUGS (9)
  1. FORTEO [Suspect]
     Indication: OSTEOPOROSIS
     Dosage: 20 UG DAY
     Dates: start: 20031015
  2. REBIF [Concomitant]
  3. BACLOFEN [Concomitant]
  4. OXYBUTYNIN [Concomitant]
  5. LEXAPRO [Concomitant]
  6. PERI-COLACE [Concomitant]
  7. NEURONTIN [Concomitant]
  8. ZELNORM (ZELNORM) [Concomitant]
  9. CALCIUM GLUCONATE [Concomitant]

REACTIONS (3)
  - CONSTIPATION [None]
  - CONTUSION [None]
  - FALL [None]
